FAERS Safety Report 7476090-9 (Version None)
Quarter: 2011Q2

REPORT INFORMATION
  Report Type: 
  Country: None (occurrence: None)
  Receive Date: 20110512
  Receipt Date: 20110502
  Transmission Date: 20111010
  Serious: Yes (Other)
  Sender: FDA-Public Use
  Company Number: IN-BRISTOL-MYERS SQUIBB COMPANY-15712250

PATIENT
  Age: 3 Month
  Sex: Female

DRUGS (4)
  1. CARBOPLATIN [Suspect]
     Indication: INTRAOCULAR RETINOBLASTOMA
     Dosage: 20 MG  RECENT DOSE 2ND
  2. ETOPOSIDE [Suspect]
     Indication: INTRAOCULAR RETINOBLASTOMA
  3. CARBOPLATIN [Suspect]
     Indication: INTRAOCULAR RETINOBLASTOMA
     Dosage: 2 ML.SUBTENON INJECTIONS. CYCLE 1ST, 2ND.  ALSO RECIEVED SYSTEMIC THERAPY
  4. VINCRISTINE [Suspect]
     Indication: INTRAOCULAR RETINOBLASTOMA

REACTIONS (2)
  - CELLULITIS ORBITAL [None]
  - CONJUNCTIVAL ULCER [None]
